FAERS Safety Report 23333695 (Version 2)
Quarter: 2023Q4

REPORT INFORMATION
  Report Type: Report from Study
  Country: CA (occurrence: US)
  Receive Date: 20231223
  Receipt Date: 20231226
  Transmission Date: 20240110
  Serious: Yes (Hospitalization)
  Sender: FDA-Public Use
  Company Number: CA-ABBVIE-5527095

PATIENT
  Sex: Male

DRUGS (1)
  1. RINVOQ [Suspect]
     Active Substance: UPADACITINIB
     Indication: Crohn^s disease
     Dosage: DISCONTINUED IN 2023, 45 MILLIGRAM
     Route: 048
     Dates: start: 20231107

REACTIONS (2)
  - Renal disorder [Unknown]
  - Infection [Recovering/Resolving]

NARRATIVE: CASE EVENT DATE: 20230101
